FAERS Safety Report 7982342-6 (Version None)
Quarter: 2011Q4

REPORT INFORMATION
  Report Type: 
  Country: None (occurrence: None)
  Receive Date: 20111215
  Receipt Date: 20111201
  Transmission Date: 20120403
  Serious: Yes (Hospitalization)
  Sender: FDA-Public Use
  Company Number: PHHY2011FR105531

PATIENT
  Sex: Female

DRUGS (11)
  1. CLOZAPINE [Suspect]
     Indication: MAJOR DEPRESSION
     Dosage: 12.5 MG ONCE DAILY
     Dates: start: 20090201, end: 20110922
  2. ESCITALOPRAM [Concomitant]
     Dates: start: 20020101
  3. TROSPIUM CHLORIDE [Concomitant]
     Dates: start: 20020101
  4. ALPRAZOLAM [Concomitant]
     Dates: start: 20020101
  5. ACEBUTOLOL [Concomitant]
     Dates: start: 20020101
  6. LEVODOPA [Concomitant]
     Dates: start: 20020101
  7. CLOZAPINE [Suspect]
     Indication: PSYCHOTIC DISORDER
  8. ZOPICLONE [Concomitant]
     Dates: start: 20020101
  9. LEVOTHYROXINE SODIUM [Concomitant]
     Dates: start: 20020101
  10. DOMPERIDONE [Concomitant]
     Dates: start: 20020101
  11. APOMORPHINE [Concomitant]
     Dates: start: 20020101

REACTIONS (7)
  - URINARY TRACT INFECTION [None]
  - HYPOXIA [None]
  - PYREXIA [None]
  - HYPOTENSION [None]
  - NEPHROLITHIASIS [None]
  - PSYCHOTIC DISORDER [None]
  - PULMONARY EMBOLISM [None]
